FAERS Safety Report 13443255 (Version 6)
Quarter: 2017Q4

REPORT INFORMATION
  Report Type: Spontaneous
  Country: HU (occurrence: HU)
  Receive Date: 20170414
  Receipt Date: 20171103
  Transmission Date: 20180320
  Serious: Yes (Hospitalization, Other)
  Sender: FDA-Public Use
  Company Number: HU-SUN PHARMACEUTICAL INDUSTRIES LTD-2017R1-138181

PATIENT
  Age: 66 Year
  Sex: Female

DRUGS (2)
  1. HYDROCHLOROTHIAZIDE. [Suspect]
     Active Substance: HYDROCHLOROTHIAZIDE
     Indication: HYPERTENSION
     Dosage: 25 MG, DAILY
     Route: 065
  2. RAMIPRIL. [Concomitant]
     Active Substance: RAMIPRIL
     Indication: HYPERTENSION
     Dosage: UNK
     Route: 065

REACTIONS (12)
  - Leukocytosis [Unknown]
  - Aspartate aminotransferase increased [Unknown]
  - Hypokalaemia [Unknown]
  - Hyponatraemia [Recovered/Resolved]
  - C-reactive protein increased [Unknown]
  - Troponin T increased [Unknown]
  - Alanine aminotransferase increased [Unknown]
  - Blood lactate dehydrogenase increased [Unknown]
  - Loss of consciousness [Unknown]
  - Blood creatine phosphokinase increased [Unknown]
  - Troponin I increased [Unknown]
  - Seizure [Unknown]
